FAERS Safety Report 21399306 (Version 2)
Quarter: 2023Q1

REPORT INFORMATION
  Report Type: Report from Study
  Country: US (occurrence: US)
  Receive Date: 20221001
  Receipt Date: 20230116
  Transmission Date: 20230418
  Serious: Yes (Other)
  Sender: FDA-Public Use
  Company Number: US-ABBVIE-4130627

PATIENT
  Age: 72 Year
  Sex: Female

DRUGS (3)
  1. HUMIRA [Suspect]
     Active Substance: ADALIMUMAB
     Indication: Psoriasis
     Dosage: 2022 WAS THE CESSATION DATE OF UTI/WENT SEPTIC DOWN INTO LEG EVENT.
     Route: 058
     Dates: start: 20210203
  2. MODERNA COVID-19 VACCINATION [Concomitant]
     Indication: COVID-19 immunisation
     Route: 030
  3. MODERNA COVID-19 VACCINATION [Concomitant]
     Indication: COVID-19 immunisation
     Dosage: BOOSTER DOSE
     Route: 030

REACTIONS (2)
  - Urosepsis [Recovered/Resolved]
  - Urinary tract infection [Recovering/Resolving]

NARRATIVE: CASE EVENT DATE: 20220901
